FAERS Safety Report 21909178 (Version 2)
Quarter: 2023Q1

REPORT INFORMATION
  Report Type: Spontaneous
  Country: CA (occurrence: CA)
  Receive Date: 20230125
  Receipt Date: 20230211
  Transmission Date: 20230418
  Serious: Yes (Hospitalization, Other)
  Sender: FDA-Public Use
  Company Number: CA-TEVA-2023-CA-2847756

PATIENT
  Age: 64 Year
  Sex: Male

DRUGS (15)
  1. PREDNISONE [Suspect]
     Active Substance: PREDNISONE
     Indication: Immunosuppressant drug therapy
     Dosage: 5 MILLIGRAM DAILY; ONCE A DAY
     Route: 065
  2. TACROLIMUS [Suspect]
     Active Substance: TACROLIMUS
     Indication: Immunosuppressant drug therapy
     Dosage: 5 MILLIGRAM DAILY; FORMULATION: EXTENDED-RELEASE , ONCE A DAY
     Route: 065
     Dates: start: 2016, end: 2017
  3. MYCOPHENOLIC ACID [Suspect]
     Active Substance: MYCOPHENOLIC ACID
     Indication: Immunosuppressant drug therapy
     Dosage: 720 MILLIGRAM DAILY; 360MG TWICE A DAY
     Route: 065
     Dates: start: 2016
  4. MYCOPHENOLIC ACID [Suspect]
     Active Substance: MYCOPHENOLIC ACID
     Dosage: DOSE DECREASED
     Route: 065
     Dates: start: 2017
  5. DOXORUBICIN [Suspect]
     Active Substance: DOXORUBICIN
     Indication: Kaposi^s sarcoma
     Dosage: LIPOSOMAL , 20 MG/M2   FREQUENCY TIME : EVERY 3 WEEKS FOR 13 MONTHS
     Route: 065
     Dates: start: 2017, end: 2018
  6. DOXORUBICIN [Suspect]
     Active Substance: DOXORUBICIN
     Dosage: LIPOSOMAL , 20 MG/M2   FREQUENCY TIME : EVERY 3 WEEKS FOR 1 YEAR
     Route: 065
     Dates: start: 2019, end: 2020
  7. DOXORUBICIN [Suspect]
     Active Substance: DOXORUBICIN
     Dosage: LIPOSOMAL , 20 MG/M2   FREQUENCY TIME : EVERY 3 WEEKS
     Route: 065
     Dates: start: 2021
  8. SIROLIMUS [Suspect]
     Active Substance: SIROLIMUS
     Indication: Immunosuppressant drug therapy
     Route: 065
     Dates: start: 2017, end: 2020
  9. SIROLIMUS [Suspect]
     Active Substance: SIROLIMUS
     Dosage: RESUMED AFTER 3 MONTHS
     Route: 065
  10. GEMCITABINE [Suspect]
     Active Substance: GEMCITABINE
     Indication: Kaposi^s sarcoma
     Route: 065
     Dates: start: 2021
  11. GEMCITABINE [Suspect]
     Active Substance: GEMCITABINE
     Dosage: DOSE REDUCED
     Route: 065
  12. ASPIRIN [Concomitant]
     Active Substance: ASPIRIN
     Indication: Product used for unknown indication
     Dosage: 81 MILLIGRAM DAILY; ONCE A DAY
     Route: 065
  13. BISOPROLOL [Concomitant]
     Active Substance: BISOPROLOL
     Indication: Product used for unknown indication
     Dosage: 5 MILLIGRAM DAILY; ONCE A DAY
     Route: 065
  14. RAMIPRIL [Concomitant]
     Active Substance: RAMIPRIL
     Indication: Product used for unknown indication
     Dosage: 10 MILLIGRAM DAILY; ONCE A DAY
     Route: 065
  15. PRAVASTATIN [Concomitant]
     Active Substance: PRAVASTATIN
     Indication: Product used for unknown indication
     Dosage: 40 MILLIGRAM DAILY; ONCE A DAY
     Route: 065

REACTIONS (5)
  - Renal-limited thrombotic microangiopathy [Unknown]
  - Aortic stenosis [Unknown]
  - Pancytopenia [Unknown]
  - Febrile neutropenia [Unknown]
  - Mucosal inflammation [Unknown]

NARRATIVE: CASE EVENT DATE: 20210101
